FAERS Safety Report 15939746 (Version 1)
Quarter: 2019Q1

REPORT INFORMATION
  Report Type: Spontaneous
  Country: DE (occurrence: DE)
  Receive Date: 20190208
  Receipt Date: 20190208
  Transmission Date: 20190417
  Serious: Yes (Other)
  Sender: FDA-Public Use
  Company Number: DE-PFIZER INC-2019052922

PATIENT
  Age: 66 Year
  Sex: Female

DRUGS (7)
  1. OPIPRAMOL [Concomitant]
     Active Substance: OPIPRAMOL
     Dosage: UNK
  2. TAVOR EXPIDET [Suspect]
     Active Substance: LORAZEPAM
     Indication: ANXIETY
  3. TAVOR EXPIDET [Suspect]
     Active Substance: LORAZEPAM
     Indication: NEURALGIA
     Dosage: UNK
  4. TAVOR EXPIDET [Suspect]
     Active Substance: LORAZEPAM
     Indication: STRESS
  5. TAVOR EXPIDET [Suspect]
     Active Substance: LORAZEPAM
     Indication: ORAL DISCOMFORT
  6. TAVOR EXPIDET [Suspect]
     Active Substance: LORAZEPAM
     Indication: DEPRESSION
  7. CORTISONE [Concomitant]
     Active Substance: CORTISONE\HYDROCORTISONE
     Dosage: UNK

REACTIONS (8)
  - Constipation [Unknown]
  - Borrelia infection [Unknown]
  - Metal poisoning [Unknown]
  - Disease recurrence [Unknown]
  - Decreased immune responsiveness [Unknown]
  - Alopecia [Unknown]
  - Photophobia [Unknown]
  - Drug ineffective [Unknown]
